FAERS Safety Report 8620636-1 (Version None)
Quarter: 2012Q3

REPORT INFORMATION
  Report Type: 
  Country: None (occurrence: None)
  Receive Date: 20120824
  Receipt Date: 20120731
  Transmission Date: 20120928
  Serious: Yes (Hospitalization)
  Sender: FDA-Public Use
  Company Number: NL-009507513-1207NLD007720

PATIENT

DRUGS (1)
  1. NUVARING [Suspect]
     Indication: CONTRACEPTION
     Dosage: UNK
     Route: 067
     Dates: start: 20080222, end: 20120719

REACTIONS (4)
  - CORONARY ARTERY EMBOLISM [None]
  - MYOCARDIAL INFARCTION [None]
  - ANGINA PECTORIS [None]
  - INFARCTION [None]
